FAERS Safety Report 20921199 (Version 1)
Quarter: 2022Q2

REPORT INFORMATION
  Report Type: Spontaneous
  Country: US (occurrence: None)
  Receive Date: 20220606
  Receipt Date: 20220606
  Transmission Date: 20220721
  Serious: Yes (Other)
  Sender: FDA-Public Use
  Company Number: None

PATIENT
  Age: 76 Year
  Sex: Male
  Weight: 90.72 kg

DRUGS (8)
  1. AMIODARONE [Suspect]
     Active Substance: AMIODARONE
     Indication: Atrial fibrillation
     Dates: start: 20190410, end: 20190430
  2. XARELTO [Concomitant]
     Active Substance: RIVAROXABAN
  3. COLCHICINE [Concomitant]
  4. SERTRALINE [Concomitant]
  5. LATANOPROST [Concomitant]
     Active Substance: LATANOPROST
  6. JWH-018 [Concomitant]
     Active Substance: JWH-018
  7. UNSPECIFIED INGREDIENT [Concomitant]
     Active Substance: UNSPECIFIED INGREDIENT
  8. ASPIRIN [Concomitant]
     Active Substance: ASPIRIN

REACTIONS (6)
  - Hypersensitivity [None]
  - Contusion [None]
  - Skin exfoliation [None]
  - Skin haemorrhage [None]
  - Scratch [None]
  - Atrial fibrillation [None]

NARRATIVE: CASE EVENT DATE: 20190410
